FAERS Safety Report 9709586 (Version 1)
Quarter: 2013Q4

REPORT INFORMATION
  Report Type: Spontaneous
  Country: US (occurrence: US)
  Receive Date: 20131126
  Receipt Date: 20131126
  Transmission Date: 20140711
  Serious: No
  Sender: FDA-Public Use
  Company Number: US-BIOGENIDEC-2013BI112648

PATIENT
  Sex: Female

DRUGS (4)
  1. AVONEX [Suspect]
     Indication: PRODUCT USED FOR UNKNOWN INDICATION
     Route: 030
  2. TECFIDERA [Concomitant]
     Indication: MULTIPLE SCLEROSIS
  3. TECFIDERA [Concomitant]
     Indication: MULTIPLE SCLEROSIS
     Route: 030
     Dates: start: 20040503, end: 20100718
  4. TECFIDERA [Concomitant]
     Indication: MULTIPLE SCLEROSIS
     Route: 030
     Dates: start: 20101129

REACTIONS (2)
  - Skin reaction [Unknown]
  - Influenza like illness [Unknown]
